FAERS Safety Report 9162846 (Version 2)
Quarter: 2013Q1

REPORT INFORMATION
  Report Type: Spontaneous
  Country: US (occurrence: None)
  Receive Date: 20130222
  Receipt Date: 20130228
  Transmission Date: 20140127
  Serious: Yes (Other)
  Sender: FDA-Public Use
  Company Number: JPI-P-029912

PATIENT
  Age: 39 Year
  Sex: Female
  Weight: 68.04 kg

DRUGS (8)
  1. XYREM [Suspect]
     Indication: CATAPLEXY
     Dosage: 6 GM (3 GM, 2 IN 1 D), ORAL
     Route: 048
     Dates: start: 20080319
  2. LAMOTRIGINE [Concomitant]
  3. ARMOUR THYROID [Concomitant]
  4. MELOXICAM [Concomitant]
  5. DICYCLOMINE [Concomitant]
  6. ESZOPICLONE [Concomitant]
  7. PANTOPRAZOLE [Concomitant]
  8. ONDANSETRON HYDROCHLORIDE [Concomitant]

REACTIONS (20)
  - Myoclonus [None]
  - Decreased appetite [None]
  - Abdominal pain [None]
  - Blood pressure increased [None]
  - Heart rate increased [None]
  - Blood potassium decreased [None]
  - Headache [None]
  - Dizziness [None]
  - Tremor [None]
  - Agitation [None]
  - Confusional state [None]
  - Drug withdrawal syndrome [None]
  - Gastrointestinal infection [None]
  - Burning sensation [None]
  - Paraesthesia [None]
  - Feeling of body temperature change [None]
  - Sleep apnoea syndrome [None]
  - Sleep apnoea syndrome [None]
  - Hallucinations, mixed [None]
  - Palpitations [None]
